FAERS Safety Report 25595650 (Version 2)
Quarter: 2025Q4

REPORT INFORMATION
  Report Type: Report from Study
  Country: US (occurrence: US)
  Receive Date: 20250723
  Receipt Date: 20251107
  Transmission Date: 20260117
  Serious: Yes (Other)
  Sender: BAYER HEALTHCARE LLC
  Company Number: US-BAYER-2025A015745

PATIENT
  Age: 81 Year
  Sex: Male
  Weight: 145 kg

DRUGS (24)
  1. ADEMPAS [Suspect]
     Active Substance: RIOCIGUAT
     Indication: Pulmonary arterial hypertension
     Dosage: UNK
     Dates: start: 20250129
  2. ADEMPAS [Suspect]
     Active Substance: RIOCIGUAT
     Indication: Pulmonary arterial hypertension
     Dosage: 0.5 MG, TID
     Route: 048
     Dates: start: 20250129
  3. ADEMPAS [Suspect]
     Active Substance: RIOCIGUAT
     Indication: Pulmonary arterial hypertension
     Dosage: 1 MG, TID
     Route: 048
  4. ADEMPAS [Suspect]
     Active Substance: RIOCIGUAT
     Indication: Pulmonary arterial hypertension
     Dosage: 1.5 MG, TID
     Route: 048
  5. ADEMPAS [Suspect]
     Active Substance: RIOCIGUAT
     Indication: Pulmonary arterial hypertension
     Dosage: 2 MG, TID
     Route: 048
  6. ADEMPAS [Suspect]
     Active Substance: RIOCIGUAT
     Indication: Pulmonary arterial hypertension
     Dosage: 2.5 MG, TID
     Route: 048
  7. ADEMPAS [Suspect]
     Active Substance: RIOCIGUAT
     Indication: Pulmonary arterial hypertension
     Dosage: 2.5 MG, TID
     Route: 048
  8. ADEMPAS [Suspect]
     Active Substance: RIOCIGUAT
     Indication: Pulmonary arterial hypertension
     Dosage: 2.5 MG, TID
     Route: 048
  9. ADEMPAS [Suspect]
     Active Substance: RIOCIGUAT
     Indication: Pulmonary arterial hypertension
     Dosage: 2 MG, TID
     Route: 048
     Dates: start: 20250129
  10. ASPIRIN [Suspect]
     Active Substance: ASPIRIN
  11. OPSUMIT [Suspect]
     Active Substance: MACITENTAN
     Dosage: UNK
     Dates: start: 202506, end: 20250622
  12. ELIQUIS [Concomitant]
     Active Substance: APIXABAN
  13. DOCUSATE SODIUM [Concomitant]
     Active Substance: DOCUSATE SODIUM
  14. FIBER LAX [Concomitant]
     Active Substance: CALCIUM POLYCARBOPHIL
  15. FLOMAX [Concomitant]
     Active Substance: TAMSULOSIN HYDROCHLORIDE
  16. SENNA S [Concomitant]
     Active Substance: DOCUSATE SODIUM\SENNOSIDES
  17. LASIX [Concomitant]
     Active Substance: FUROSEMIDE
  18. BREZTRI [Concomitant]
     Active Substance: BUDESONIDE\FORMOTEROL\GLYCOPYRROLATE
  19. ALBUTEROL SULFATE [Concomitant]
     Active Substance: ALBUTEROL SULFATE
  20. VITAMIN B12 [Concomitant]
     Active Substance: CYANOCOBALAMIN
  21. OXYGEN [Concomitant]
     Active Substance: OXYGEN
  22. TUMS EX [Concomitant]
     Active Substance: CALCIUM CARBONATE
  23. CLOBETASOL PROPIONATE [Concomitant]
     Active Substance: CLOBETASOL PROPIONATE
  24. MAGNESIUM CITRATE [Concomitant]
     Active Substance: MAGNESIUM CITRATE

REACTIONS (20)
  - Haemoptysis [None]
  - Angina pectoris [Recovered/Resolved]
  - Haemoptysis [None]
  - Peripheral swelling [None]
  - Dyspepsia [None]
  - Oedema peripheral [None]
  - Headache [Recovered/Resolved]
  - Headache [Recovering/Resolving]
  - Gastrooesophageal reflux disease [Recovering/Resolving]
  - Peripheral swelling [Recovering/Resolving]
  - Dyspepsia [None]
  - Oedema peripheral [None]
  - Dyspnoea [None]
  - Peripheral swelling [Recovered/Resolved]
  - Abdominal pain upper [Recovered/Resolved]
  - Abdominal distension [None]
  - Decreased appetite [None]
  - Abdominal pain upper [None]
  - Constipation [None]
  - Gastrooesophageal reflux disease [None]

NARRATIVE: CASE EVENT DATE: 20250101
